FAERS Safety Report 16453542 (Version 3)
Quarter: 2019Q3

REPORT INFORMATION
  Report Type: Report from Study
  Country: GB (occurrence: GB)
  Receive Date: 20190619
  Receipt Date: 20190709
  Transmission Date: 20191004
  Serious: Yes (Hospitalization)
  Sender: FDA-Public Use
  Company Number: GB-SA-2019SA164730

PATIENT

DRUGS (2)
  1. CO AMOXICLAV [AMOXICILLIN SODIUM;CLAVULANATE POTASSIUM] [Concomitant]
     Indication: INFECTION
     Dosage: 3.6 MG, TID
     Route: 042
     Dates: start: 20190612, end: 20190614
  2. CABAZITAXEL [Suspect]
     Active Substance: CABAZITAXEL
     Indication: CHEMOTHERAPY
     Dosage: 3.5 MG, Q3W
     Route: 042
     Dates: start: 20190612, end: 20190612

REACTIONS (1)
  - Hypersensitivity [Recovered/Resolved]

NARRATIVE: CASE EVENT DATE: 20190612
